FAERS Safety Report 20688387 (Version 1)
Quarter: 2022Q2

REPORT INFORMATION
  Report Type: Spontaneous
  Country: RO (occurrence: RO)
  Receive Date: 20220408
  Receipt Date: 20220408
  Transmission Date: 20220721
  Serious: Yes (Other)
  Sender: FDA-Public Use
  Company Number: RO-AMGEN-ROUSP2022060371

PATIENT
  Age: 71 Year
  Sex: Male

DRUGS (5)
  1. VECTIBIX [Suspect]
     Active Substance: PANITUMUMAB
     Indication: Colorectal cancer metastatic
     Dosage: 6 MILLIGRAM/KILOGRAM
     Route: 042
     Dates: start: 20191119
  2. LEUCOVORIN [Concomitant]
     Active Substance: LEUCOVORIN
     Indication: Product used for unknown indication
     Dosage: UNK
     Route: 065
     Dates: start: 20191105
  3. FLUOROURACIL [Concomitant]
     Active Substance: FLUOROURACIL
     Indication: Product used for unknown indication
     Dosage: UNK
     Route: 065
     Dates: start: 20191105
  4. OXALIPLATIN [Concomitant]
     Active Substance: OXALIPLATIN
     Indication: Product used for unknown indication
     Dosage: UNK
     Route: 065
     Dates: start: 20170823
  5. CAPECITABINE [Concomitant]
     Active Substance: CAPECITABINE
     Indication: Product used for unknown indication
     Dosage: UNK
     Route: 065
     Dates: start: 20170823

REACTIONS (10)
  - Mucosal toxicity [Unknown]
  - Skin toxicity [Unknown]
  - Rash [Unknown]
  - Thrombocytopenia [Unknown]
  - Neutropenia [Unknown]
  - Neuropathy peripheral [Unknown]
  - Diarrhoea [Unknown]
  - Xeroderma [Unknown]
  - Nail toxicity [Unknown]
  - Tooth disorder [Unknown]

NARRATIVE: CASE EVENT DATE: 20200127
